FAERS Safety Report 12369360 (Version 5)
Quarter: 2016Q3

REPORT INFORMATION
  Report Type: Spontaneous
  Country: DE (occurrence: DE)
  Receive Date: 20160513
  Receipt Date: 20160706
  Transmission Date: 20161109
  Serious: Yes (Life-Threatening, Hospitalization)
  Sender: FDA-Public Use
  Company Number: DE-BAYER-2016-092124

PATIENT
  Age: 48 Year
  Sex: Female
  Weight: 110 kg

DRUGS (1)
  1. ULTRAVIST [Suspect]
     Active Substance: IOPROMIDE
     Indication: CHEST X-RAY
     Dosage: 50 ML, ONCE
     Route: 042

REACTIONS (6)
  - Cardiovascular disorder [None]
  - Anaphylactic shock [Unknown]
  - Cardio-respiratory arrest [Unknown]
  - Nausea [None]
  - Seizure [None]
  - Chest discomfort [None]

NARRATIVE: CASE EVENT DATE: 20160512
